FAERS Safety Report 14209928 (Version 1)
Quarter: 2017Q4

REPORT INFORMATION
  Report Type: Spontaneous
  Country: AU (occurrence: AU)
  Receive Date: 20171121
  Receipt Date: 20171121
  Transmission Date: 20180321
  Serious: Yes (Hospitalization, Other)
  Sender: FDA-Public Use
  Company Number: AU-SUNOVION-2017DSP005673

PATIENT
  Age: 40 Year
  Sex: Female

DRUGS (2)
  1. PENTIXOL (FLUPENTIXOL DIHYDROCHLORIDE) [Suspect]
     Active Substance: FLUPENTIXOL DIHYDROCHLORIDE
     Indication: SCHIZOPHRENIA
     Dosage: UNK
     Route: 065
     Dates: start: 20171027
  2. LATUDA [Suspect]
     Active Substance: LURASIDONE HYDROCHLORIDE
     Indication: SCHIZOPHRENIA
     Dosage: 80 MG, BID
     Route: 048
     Dates: start: 20170627, end: 201711

REACTIONS (2)
  - Neuroleptic malignant syndrome [Unknown]
  - Catatonia [Unknown]

NARRATIVE: CASE EVENT DATE: 20171110
